FAERS Safety Report 8055857-2 (Version None)
Quarter: 2012Q1

REPORT INFORMATION
  Report Type: 
  Country: None (occurrence: None)
  Receive Date: 20120119
  Receipt Date: 20120119
  Transmission Date: 20120608
  Serious: Yes (Hospitalization)
  Sender: FDA-Public Use
  Company Number: None

PATIENT
  Age: 22 Year
  Sex: Female
  Weight: 122.5 kg

DRUGS (4)
  1. ZOVIA 1/35E-21 [Concomitant]
  2. YASMIN 3-0.03 [Concomitant]
  3. ZOVIA 1/35E-21 [Suspect]
     Indication: ORAL CONTRACEPTION
     Dosage: 1-35
     Route: 048
     Dates: start: 20090417, end: 20110822
  4. ETHYNODIOL DIACETATE AND ETHINYL ESTRADIOL [Concomitant]

REACTIONS (3)
  - PULMONARY EMBOLISM [None]
  - OVARIAN HYPERFUNCTION [None]
  - PRODUCT SUBSTITUTION ISSUE [None]
